FAERS Safety Report 17145377 (Version 2)
Quarter: 2019Q4

REPORT INFORMATION
  Report Type: Spontaneous
  Country: US (occurrence: US)
  Receive Date: 20191212
  Receipt Date: 20191231
  Transmission Date: 20200122
  Serious: Yes (Hospitalization)
  Sender: FDA-Public Use
  Company Number: US-VIFOR (INTERNATIONAL) INC.-VIT-2019-15929

PATIENT
  Age: 52 Year
  Sex: Male
  Weight: 140.29 kg

DRUGS (16)
  1. ENTRESTO [Concomitant]
     Active Substance: SACUBITRIL\VALSARTAN
     Dosage: 97 - 103 MG
     Dates: start: 20180215
  2. LEVEMIR [Concomitant]
     Active Substance: INSULIN DETEMIR
     Dates: start: 20190404
  3. VELTASSA [Suspect]
     Active Substance: PATIROMER
     Indication: HYPERKALAEMIA
     Route: 048
     Dates: start: 20180216
  4. COUMADIN [Concomitant]
     Active Substance: WARFARIN SODIUM
     Dates: start: 20190404
  5. FEROSUL [Concomitant]
     Active Substance: FERROUS SULFATE
     Dates: start: 20190404
  6. LASIX [Concomitant]
     Active Substance: FUROSEMIDE
     Dates: start: 20180215
  7. SYNTHROID [Concomitant]
     Active Substance: LEVOTHYROXINE SODIUM
     Dates: start: 20190404
  8. HUMALOG [Concomitant]
     Active Substance: INSULIN LISPRO
     Dates: start: 20190404
  9. RAYALDEE [Concomitant]
     Active Substance: CALCIFEDIOL
     Dates: start: 20190904
  10. ZOCOR [Concomitant]
     Active Substance: SIMVASTATIN
     Dates: start: 20190404
  11. ENTRESTO [Concomitant]
     Active Substance: SACUBITRIL\VALSARTAN
     Dosage: 49 - 51 MG
     Dates: start: 20190404
  12. COREG [Concomitant]
     Active Substance: CARVEDILOL
     Dates: start: 20180215
  13. COREG [Concomitant]
     Active Substance: CARVEDILOL
     Dates: start: 20190404
  14. COUMADIN [Concomitant]
     Active Substance: WARFARIN SODIUM
     Dates: start: 20180215
  15. LEVOTHYROXINE. [Concomitant]
     Active Substance: LEVOTHYROXINE
     Dates: start: 20180215
  16. SODIUM BICAR [Concomitant]
     Dates: start: 20180215

REACTIONS (1)
  - Hypertension [Not Recovered/Not Resolved]

NARRATIVE: CASE EVENT DATE: 20191203
